FAERS Safety Report 22070698 (Version 1)
Quarter: 2023Q1

REPORT INFORMATION
  Report Type: Spontaneous
  Country: EG (occurrence: EG)
  Receive Date: 20230307
  Receipt Date: 20230307
  Transmission Date: 20230417
  Serious: Yes (Hospitalization)
  Sender: FDA-Public Use
  Company Number: EG-MYLANLABS-2023M1023807

PATIENT
  Age: 35 Year
  Sex: Male

DRUGS (17)
  1. INSULIN NOS [Suspect]
     Active Substance: INSULIN NOS
     Indication: Pancreatitis acute
     Dosage: UNK
     Route: 065
  2. ATORVASTATIN [Suspect]
     Active Substance: ATORVASTATIN
     Indication: Pancreatitis acute
     Dosage: 20 MILLIGRAM
     Route: 065
  3. TEICOPLANIN [Suspect]
     Active Substance: TEICOPLANIN
     Indication: Pancreatitis acute
     Dosage: 400 MILLIGRAM
     Route: 065
  4. MEROPENEM [Suspect]
     Active Substance: MEROPENEM
     Indication: Pancreatitis acute
     Dosage: 1 GRAM
     Route: 065
  5. LEVOFLOXACIN [Suspect]
     Active Substance: LEVOFLOXACIN
     Indication: Pancreatitis acute
     Dosage: 500 MILLIGRAM
     Route: 065
  6. METRONIDAZOLE [Suspect]
     Active Substance: METRONIDAZOLE
     Indication: Pancreatitis acute
     Dosage: 500 MILLIGRAM
     Route: 065
  7. ACETAMINOPHEN [Suspect]
     Active Substance: ACETAMINOPHEN
     Indication: Pancreatitis acute
     Dosage: 1 GRAM
     Route: 042
  8. PANTOPRAZOLE [Suspect]
     Active Substance: PANTOPRAZOLE
     Indication: Pancreatitis acute
     Dosage: 40 MILLIGRAM
     Route: 042
  9. TRAMADOL [Suspect]
     Active Substance: TRAMADOL
     Indication: Pancreatitis acute
     Dosage: 100 MILLIGRAM
     Route: 042
  10. OMEGA-3 FATTY ACIDS [Suspect]
     Active Substance: OMEGA-3 FATTY ACIDS
     Indication: Pancreatitis acute
     Dosage: 1 GRAM
     Route: 065
  11. FENOFIBRATE [Suspect]
     Active Substance: FENOFIBRATE
     Indication: Pancreatitis acute
     Dosage: 145 MILLIGRAM
     Route: 065
  12. MORPHINE [Suspect]
     Active Substance: MORPHINE
     Indication: Pancreatitis acute
     Dosage: 4 MILLIGRAM
     Route: 042
  13. ENOXAPARIN SODIUM [Suspect]
     Active Substance: ENOXAPARIN SODIUM
     Indication: Pancreatitis acute
     Dosage: 40 MILLIGRAM
     Route: 058
  14. ONDANSETRON [Suspect]
     Active Substance: ONDANSETRON
     Indication: Pancreatitis acute
     Dosage: UNK
     Route: 042
  15. HYDROCORTISONE [Suspect]
     Active Substance: HYDROCORTISONE
     Indication: Pancreatitis acute
     Dosage: UNK
     Route: 042
  16. SITAGLIPTIN [Concomitant]
     Active Substance: SITAGLIPTIN
     Indication: Product used for unknown indication
     Dosage: 50 MILLIGRAM
     Route: 065
  17. METFORMIN [Concomitant]
     Active Substance: METFORMIN HYDROCHLORIDE
     Indication: Product used for unknown indication
     Dosage: 500 MILLIGRAM
     Route: 065

REACTIONS (2)
  - Drug ineffective for unapproved indication [Unknown]
  - Off label use [Unknown]
